FAERS Safety Report 7556926-3 (Version None)
Quarter: 2011Q2

REPORT INFORMATION
  Report Type: 
  Country: None (occurrence: None)
  Receive Date: 20110620
  Receipt Date: 20110606
  Transmission Date: 20111010
  Serious: Yes (Other)
  Sender: FDA-Public Use
  Company Number: PHHY2010US47953

PATIENT
  Sex: Female

DRUGS (10)
  1. XANAX [Concomitant]
  2. RECLAST [Suspect]
     Route: 042
     Dates: start: 20100622
  3. SYNTHROID [Concomitant]
  4. COVAIR [Concomitant]
  5. ASPIRIN [Concomitant]
  6. XOPENEX [Concomitant]
  7. MULTI-VITAMINS [Concomitant]
  8. CARDIZEM [Concomitant]
  9. VITAMIN D [Concomitant]
  10. SPIRIVA [Concomitant]

REACTIONS (9)
  - TEMPOROMANDIBULAR JOINT SYNDROME [None]
  - HYPOKINESIA [None]
  - MASTICATION DISORDER [None]
  - INFECTION [None]
  - PAIN IN JAW [None]
  - JAW DISORDER [None]
  - INFLAMMATION [None]
  - VEIN DISORDER [None]
  - TEETHING [None]
